FAERS Safety Report 9201733 (Version 1)
Quarter: 2013Q1

REPORT INFORMATION
  Report Type: Spontaneous
  Country: IT (occurrence: None)
  Receive Date: 20130327
  Receipt Date: 20130327
  Transmission Date: 20140127
  Serious: Yes (Hospitalization)
  Sender: FDA-Public Use
  Company Number: GER/ITL/13/0028680

PATIENT
  Sex: Female

DRUGS (1)
  1. CLOPIDOGREL (CLOPIDOGREL) [Suspect]
     Indication: PRODUCT USED FOR UNKNOWN INDICATION

REACTIONS (5)
  - Aggression [None]
  - Agitation [None]
  - Sleep phase rhythm disturbance [None]
  - Disorientation [None]
  - Cognitive disorder [None]
